FAERS Safety Report 11468726 (Version 2)
Quarter: 2015Q3

REPORT INFORMATION
  Report Type: Report from Study
  Country: ES (occurrence: ES)
  Receive Date: 20150908
  Receipt Date: 20150911
  Transmission Date: 20151125
  Serious: Yes (Other)
  Sender: FDA-Public Use
  Company Number: ES-GLAXOSMITHKLINE-B1002863A

PATIENT
  Age: 77 Year
  Sex: Female
  Weight: 56 kg

DRUGS (5)
  1. DABRAFENIB [Suspect]
     Active Substance: DABRAFENIB
     Dosage: 100 MG, BID
     Dates: start: 20140605
  2. TRAMETINIB [Suspect]
     Active Substance: TRAMETINIB
     Indication: METASTATIC MALIGNANT MELANOMA
     Dosage: 2 MG, QD
     Route: 048
     Dates: start: 20130403, end: 20140522
  3. DABRAFENIB [Suspect]
     Active Substance: DABRAFENIB
     Indication: METASTATIC MALIGNANT MELANOMA
     Dosage: 150 MG, BID
     Route: 048
     Dates: start: 20130403, end: 20131113
  4. DABRAFENIB [Suspect]
     Active Substance: DABRAFENIB
     Dosage: 100 MG, BID
     Dates: start: 20131113, end: 20140522
  5. TRAMETINIB [Suspect]
     Active Substance: TRAMETINIB
     Dosage: 1.5 MG, QD
     Dates: start: 20140605, end: 20140714

REACTIONS (24)
  - Urinary tract infection [Recovered/Resolved]
  - Palmar-plantar erythrodysaesthesia syndrome [Recovered/Resolved]
  - Hypoalbuminaemia [Recovered/Resolved]
  - Diarrhoea [Recovered/Resolved]
  - Asthenia [Recovered/Resolved]
  - Oedema peripheral [Recovered/Resolved]
  - Diarrhoea [Recovered/Resolved]
  - Anaemia [Recovered/Resolved]
  - Diarrhoea [Recovered/Resolved]
  - Asthenia [Recovered/Resolved]
  - Haematuria [Recovered/Resolved]
  - Asthenia [Not Recovered/Not Resolved]
  - Macular oedema [Recovered/Resolved]
  - Dry skin [Recovered/Resolved]
  - Haematuria [Recovered/Resolved]
  - Glaucoma [Recovered/Resolved]
  - Onychoclasis [Not Recovered/Not Resolved]
  - Eyelash discolouration [Not Recovered/Not Resolved]
  - Eyelid ptosis [Recovered/Resolved]
  - Alopecia [Not Recovered/Not Resolved]
  - Asthenia [Recovered/Resolved]
  - Palmar-plantar erythrodysaesthesia syndrome [Recovered/Resolved]
  - Anaemia [Recovered/Resolved]
  - Hypoalbuminaemia [Not Recovered/Not Resolved]

NARRATIVE: CASE EVENT DATE: 20130724
